FAERS Safety Report 17904582 (Version 1)
Quarter: 2020Q2

REPORT INFORMATION
  Report Type: Spontaneous
  Country: US (occurrence: US)
  Receive Date: 20200616
  Receipt Date: 20200616
  Transmission Date: 20200714
  Serious: No
  Sender: FDA-Public Use
  Company Number: US-ROCHE-2445850

PATIENT
  Sex: Female

DRUGS (1)
  1. ACTEMRA [Suspect]
     Active Substance: TOCILIZUMAB
     Indication: TEMPORAL ARTERITIS
     Route: 065
     Dates: start: 20190502

REACTIONS (4)
  - Influenza like illness [Unknown]
  - Alopecia [Unknown]
  - Headache [Unknown]
  - Cough [Unknown]

NARRATIVE: CASE EVENT DATE: 20191014
